FAERS Safety Report 11651535 (Version 1)
Quarter: 2015Q4

REPORT INFORMATION
  Report Type: Spontaneous
  Country: US (occurrence: None)
  Receive Date: 20151021
  Receipt Date: 20151021
  Transmission Date: 20160304
  Serious: Yes (Hospitalization)
  Sender: FDA-Public Use
  Company Number: None

PATIENT
  Age: 55 Year
  Sex: Male
  Weight: 73.5 kg

DRUGS (14)
  1. HARVONI [Suspect]
     Active Substance: LEDIPASVIR\SOFOSBUVIR
     Indication: HEPATITIS C
     Dosage: 400/90 MG
     Route: 048
     Dates: start: 20150519, end: 20150813
  2. LISINOPRIL. [Concomitant]
     Active Substance: LISINOPRIL
  3. GLUCOSAMINE/CHONDROITIN [Concomitant]
  4. LEVETIRACE [Concomitant]
  5. TESTOSTERONE. [Concomitant]
     Active Substance: TESTOSTERONE
  6. AZATHIOPRINE. [Concomitant]
     Active Substance: AZATHIOPRINE
  7. BROMOCRIPTINE [Concomitant]
     Active Substance: BROMOCRIPTINE
  8. RIBAVIRIN 200 MG [Suspect]
     Active Substance: RIBAVIRIN
     Indication: HEPATITIS C
     Route: 048
     Dates: start: 20150519, end: 20150813
  9. FISH OIL [Concomitant]
     Active Substance: FISH OIL
  10. MULTIVITAMIN [Concomitant]
     Active Substance: VITAMINS
  11. EPOGEN [Concomitant]
     Active Substance: ERYTHROPOIETIN
  12. LEVOTHYROXINE. [Concomitant]
     Active Substance: LEVOTHYROXINE
  13. PREDNISONE. [Concomitant]
     Active Substance: PREDNISONE
  14. CYCLOSPORINE. [Concomitant]
     Active Substance: CYCLOSPORINE

REACTIONS (3)
  - Mental status changes [None]
  - Hyponatraemia [None]
  - Dehydration [None]

NARRATIVE: CASE EVENT DATE: 20150718
